FAERS Safety Report 9119258 (Version 1)
Quarter: 2013Q1

REPORT INFORMATION
  Report Type: Spontaneous
  Country: US (occurrence: None)
  Receive Date: 20130221
  Receipt Date: 20130221
  Transmission Date: 20140127
  Serious: Yes (Hospitalization, Other)
  Sender: FDA-Public Use
  Company Number: None

PATIENT
  Age: 32 Year
  Sex: Female
  Weight: 70.31 kg

DRUGS (1)
  1. MIRENA IUD  BAYER [Suspect]
     Indication: CONTRACEPTION
     Dates: start: 20110620, end: 20121010

REACTIONS (5)
  - Procedural pain [None]
  - Suppressed lactation [None]
  - Dyspareunia [None]
  - Libido decreased [None]
  - Complication of device removal [None]
